FAERS Safety Report 9783863 (Version 2)
Quarter: 2014Q1

REPORT INFORMATION
  Report Type: Spontaneous
  Country: US (occurrence: US)
  Receive Date: 20131226
  Receipt Date: 20140129
  Transmission Date: 20141002
  Serious: No
  Sender: FDA-Public Use
  Company Number: US-PFIZER INC-2013365177

PATIENT
  Age: 82 Year
  Sex: Female

DRUGS (1)
  1. LIPITOR [Suspect]
     Dosage: UNK, 1X/DAY IN THE EVENING

REACTIONS (5)
  - Osteoarthritis [Unknown]
  - Tooth infection [Unknown]
  - Rosacea [Unknown]
  - Gastrointestinal disorder [Unknown]
  - Dyspepsia [Unknown]
